FAERS Safety Report 8233454-3 (Version None)
Quarter: 2012Q1

REPORT INFORMATION
  Report Type: 
  Country: None (occurrence: None)
  Receive Date: 20120326
  Receipt Date: 20120320
  Transmission Date: 20120608
  Serious: Yes (Hospitalization)
  Sender: FDA-Public Use
  Company Number: TR-PERRIGO-12TR002405

PATIENT
  Age: 39 Year
  Sex: Female

DRUGS (2)
  1. CETIRIZINE HCL [Suspect]
     Indication: PRODUCT USED FOR UNKNOWN INDICATION
     Dosage: 10 MG, SINGLE
     Route: 048
  2. CETIRIZINE HCL [Suspect]
     Dosage: 10 MG, SINGLE
     Route: 048

REACTIONS (2)
  - URTICARIA [None]
  - RASH [None]
